FAERS Safety Report 9099759 (Version 2)
Quarter: 2013Q2

REPORT INFORMATION
  Report Type: Spontaneous
  Country: US (occurrence: US)
  Receive Date: 20130214
  Receipt Date: 20130403
  Transmission Date: 20140414
  Serious: Yes (Hospitalization)
  Sender: FDA-Public Use
  Company Number: US-BAYER-2013-019179

PATIENT
  Age: 32 Year
  Sex: Female
  Weight: 113 kg

DRUGS (4)
  1. YAZ [Suspect]
     Indication: CONTRACEPTION
     Dosage: UNK
     Dates: start: 1999
  2. YASMIN [Suspect]
     Indication: CONTRACEPTION
     Dosage: UNK
     Dates: start: 2009, end: 2012
  3. OCELLA [Suspect]
     Dosage: UNK
     Dates: start: 2009
  4. IBUPROFEN [Concomitant]

REACTIONS (5)
  - Thrombophlebitis superficial [None]
  - Pulmonary embolism [None]
  - Injury [None]
  - Deep vein thrombosis [None]
  - Deep vein thrombosis [None]
